FAERS Safety Report 14805277 (Version 2)
Quarter: 2018Q2

REPORT INFORMATION
  Report Type: Spontaneous
  Country: CA (occurrence: CA)
  Receive Date: 20180425
  Receipt Date: 20180507
  Transmission Date: 20180711
  Serious: Yes (Other)
  Sender: FDA-Public Use
  Company Number: CA-CELLTRION INC.-2018CA019341

PATIENT

DRUGS (14)
  1. INFLECTRA [Suspect]
     Active Substance: INFLIXIMAB-DYYB
     Dosage: 5 MG/KG, CYCLIC  (EVERY 0,2,6 WEEKS THEN EVERY 8 WEEKS)
     Route: 042
     Dates: start: 20180413
  2. AZATHIOPRINE TEVA [Concomitant]
     Active Substance: AZATHIOPRINE
     Dosage: 50 MG X 4
     Route: 065
     Dates: start: 20180404
  3. VENLAFAXINE                        /01233802/ [Concomitant]
     Active Substance: VENLAFAXINE HYDROCHLORIDE
     Dosage: 75 MG, DAILY
     Route: 065
  4. ROGAINE [Concomitant]
     Active Substance: MINOXIDIL
     Dosage: 1 ML
     Route: 065
  5. PMS-ZOPICLONE [Concomitant]
     Active Substance: ZOPICLONE
     Dosage: 1/2 TO 1, 7.5 MG, DAILY
     Route: 048
  6. ACT BUPROPION XL [Concomitant]
     Dosage: 300 MG, DAILY
     Route: 065
  7. VITAMIN B12 [Concomitant]
     Active Substance: CYANOCOBALAMIN
     Dosage: 250 MG, DAILY
     Route: 065
  8. VIAGRA [Suspect]
     Active Substance: SILDENAFIL CITRATE
     Indication: ERECTILE DYSFUNCTION
     Dosage: 1/2 TO 1 TABLET OF 100MG BEFORE SEXUAL ACTIVITY
     Route: 065
  9. PMS CELECOXIB [Concomitant]
     Dosage: 100 MG, BID
     Route: 065
  10. COLESTID [Concomitant]
     Active Substance: COLESTIPOL HYDROCHLORIDE
     Dosage: 2 G, BID
     Route: 065
  11. PMS CLONAZEPAM [Concomitant]
     Dosage: 1/2 TO 1, 1 MG, DAILY AS NEEDED
     Route: 065
  12. MINT RISPERIDON [Concomitant]
     Dosage: 0.5 MG, DAILY AT BEDTIME
     Route: 065
  13. PMS-LOPERAMIDE [Concomitant]
     Dosage: 2 MG, BID,  AS NEEDED
     Route: 065
  14. PMS-HYDROMORPHONE [Concomitant]
     Active Substance: HYDROMORPHONE HYDROCHLORIDE
     Dosage: 1 MG, EVERY 3 HOURS AS NEEDED
     Route: 065

REACTIONS (1)
  - Vein rupture [Unknown]

NARRATIVE: CASE EVENT DATE: 20180413
